FAERS Safety Report 4955000-X (Version None)
Quarter: 2006Q1

REPORT INFORMATION
  Report Type: 
  Country: None (occurrence: None)
  Receive Date: 20060321
  Receipt Date: 20060310
  Transmission Date: 20060701
  Serious: Yes (Hospitalization, Other)
  Sender: FDA-Public Use
  Company Number: 200610079BCC

PATIENT
  Age: 84 Year
  Sex: Male
  Weight: 80.7403 kg

DRUGS (3)
  1. ALEVE (CAPLET) [Suspect]
     Indication: PAIN IN EXTREMITY
     Dosage: 440 MG, TOTAL DAILY, ORAL
     Route: 048
  2. ALEVE (CAPLET) [Suspect]
  3. HIGH BLOOD PRESSURE MEDICATION [Concomitant]

REACTIONS (5)
  - FAECAL INCONTINENCE [None]
  - MICTURITION DISORDER [None]
  - MYOCARDIAL INFARCTION [None]
  - PROSTATIC DISORDER [None]
  - RECTAL HAEMORRHAGE [None]
